FAERS Safety Report 13284351 (Version 1)
Quarter: 2017Q1

REPORT INFORMATION
  Report Type: Spontaneous
  Country: US (occurrence: US)
  Receive Date: 20170301
  Receipt Date: 20170301
  Transmission Date: 20170428
  Serious: No
  Sender: FDA-Public Use
  Company Number: GXBR2017US000461

PATIENT
  Sex: Male
  Weight: 49.89 kg

DRUGS (1)
  1. TRIAMCINOLONE ACETONIDE. [Suspect]
     Active Substance: TRIAMCINOLONE ACETONIDE
     Indication: SKIN FISSURES
     Dosage: APPLY A THIN LAYER 2 TO 3 TIMES A DAY
     Route: 061

REACTIONS (2)
  - Dry skin [Not Recovered/Not Resolved]
  - Laceration [Not Recovered/Not Resolved]
